FAERS Safety Report 6183211-7 (Version None)
Quarter: 2009Q2

REPORT INFORMATION
  Report Type: 
  Country: None (occurrence: None)
  Receive Date: 20090506
  Receipt Date: 20090422
  Transmission Date: 20091009
  Serious: Yes (Other)
  Sender: FDA-Public Use
  Company Number: POMP-1000449

PATIENT
  Age: 7 Month
  Sex: Male
  Weight: 9.6 kg

DRUGS (1)
  1. MYOZYME [Suspect]
     Indication: GLYCOGEN STORAGE DISEASE TYPE II
     Dosage: 20 MG/KG, Q2W, INTRAVENOUS
     Route: 042
     Dates: start: 20080923

REACTIONS (3)
  - DRUG INEFFECTIVE [None]
  - RESPIRATORY FAILURE [None]
  - SEPSIS [None]
